FAERS Safety Report 18812230 (Version 1)
Quarter: 2021Q1

REPORT INFORMATION
  Report Type: Spontaneous
  Country: US (occurrence: US)
  Receive Date: 20210129
  Receipt Date: 20210129
  Transmission Date: 20210419
  Serious: Yes (Death)
  Sender: FDA-Public Use
  Company Number: US-ROCHE-2760066

PATIENT
  Age: 76 Year
  Sex: Male

DRUGS (1)
  1. ESBRIET [Suspect]
     Active Substance: PIRFENIDONE
     Indication: CHRONIC OBSTRUCTIVE PULMONARY DISEASE
     Route: 048
     Dates: start: 20190619

REACTIONS (3)
  - Death [Fatal]
  - Off label use [Fatal]
  - Product use in unapproved indication [Fatal]

NARRATIVE: CASE EVENT DATE: 20210106
